FAERS Safety Report 10681101 (Version 1)
Quarter: 2014Q4

REPORT INFORMATION
  Report Type: Spontaneous
  Country: IT (occurrence: IT)
  Receive Date: 20141229
  Receipt Date: 20141229
  Transmission Date: 20150529
  Serious: Yes (Other)
  Sender: FDA-Public Use
  Company Number: PHHY2014IT166936

PATIENT
  Age: 54 Year
  Sex: Female

DRUGS (2)
  1. OXALIPLATIN SANDOZ [Suspect]
     Active Substance: OXALIPLATIN
     Indication: COLON CANCER
     Dosage: 100 MG, UNK
     Route: 042
     Dates: start: 20141014, end: 20141119
  2. FLUOROURACIL-TEVA [Suspect]
     Active Substance: FLUOROURACIL
     Indication: COLON CANCER
     Dosage: 3250 MG, UNK
     Route: 042
     Dates: start: 20141014, end: 20141119

REACTIONS (4)
  - Abdominal pain [Recovered/Resolved]
  - Dyspnoea [Recovered/Resolved]
  - Chills [Recovered/Resolved]
  - Malaise [Recovered/Resolved]

NARRATIVE: CASE EVENT DATE: 20141119
